FAERS Safety Report 5370673-8 (Version None)
Quarter: 2007Q2

REPORT INFORMATION
  Report Type: 
  Country: None (occurrence: None)
  Receive Date: 20070618
  Receipt Date: 20060629
  Transmission Date: 20071010
  Serious: Yes (Hospitalization)
  Sender: FDA-Public Use
  Company Number: PHEH2006US08083

PATIENT
  Age: 62 Year
  Sex: Female

DRUGS (2)
  1. GLEEVEC [Suspect]
     Indication: CHRONIC MYELOID LEUKAEMIA
     Dosage: 200 MG, QD, ORAL; 400 MG, QD, ORAL
     Route: 048
     Dates: start: 20051201, end: 20051201
  2. GLEEVEC [Suspect]
     Indication: CHRONIC MYELOID LEUKAEMIA
     Dosage: 200 MG, QD, ORAL; 400 MG, QD, ORAL
     Route: 048
     Dates: start: 20051201, end: 20060101

REACTIONS (4)
  - MALAISE [None]
  - NAUSEA [None]
  - RASH [None]
  - STEVENS-JOHNSON SYNDROME [None]
